FAERS Safety Report 17584550 (Version 2)
Quarter: 2020Q1

REPORT INFORMATION
  Report Type: Spontaneous
  Country: US (occurrence: US)
  Receive Date: 20200326
  Receipt Date: 20200327
  Transmission Date: 20200409
  Serious: Yes (Hospitalization)
  Sender: FDA-Public Use
  Company Number: US-AJANTA PHARMA USA INC.-2081996

PATIENT
  Age: 65 Year
  Sex: Female
  Weight: 62.73 kg

DRUGS (7)
  1. UNSPECIFIED ANTIDEPRESSANT [Suspect]
     Active Substance: UNSPECIFIED INGREDIENT
  2. DULOXETINE (ANDA 208706) [Suspect]
     Active Substance: DULOXETINE
     Indication: DEPRESSION
     Route: 048
  3. LORAZEPAM. [Concomitant]
     Active Substance: LORAZEPAM
  4. WOMEN^S DAY MULTIVITAMIN [Concomitant]
  5. IBUPROFEN. [Concomitant]
     Active Substance: IBUPROFEN
  6. RED YEAST RICE [Concomitant]
     Active Substance: DIETARY SUPPLEMENT
  7. VITAMIN C [Concomitant]
     Active Substance: ASCORBIC ACID

REACTIONS (12)
  - Mental disorder [Recovered/Resolved]
  - Insomnia [Not Recovered/Not Resolved]
  - Memory impairment [Not Recovered/Not Resolved]
  - Neurological symptom [Not Recovered/Not Resolved]
  - Drug ineffective [Recovered/Resolved]
  - Headache [Unknown]
  - Alopecia [Not Recovered/Not Resolved]
  - Dizziness [Not Recovered/Not Resolved]
  - Fall [Unknown]
  - Hair disorder [Unknown]
  - Blood cholesterol increased [Unknown]
  - Wrong technique in product usage process [Recovered/Resolved]

NARRATIVE: CASE EVENT DATE: 2020
